FAERS Safety Report 18345573 (Version 1)
Quarter: 2020Q4

REPORT INFORMATION
  Report Type: Spontaneous
  Country: US (occurrence: US)
  Receive Date: 20201005
  Receipt Date: 20201005
  Transmission Date: 20210114
  Serious: No
  Sender: FDA-Public Use
  Company Number: US-HORIZON-PEN-0439-2020

PATIENT
  Age: 79 Year
  Sex: Female

DRUGS (1)
  1. PENNSAID [Suspect]
     Active Substance: DICLOFENAC SODIUM
     Indication: ARTHRITIS
     Dosage: AS NEEDED FOR HER KNEE (MOSTLY EVERY OTHER NIGHT)

REACTIONS (3)
  - Dizziness [Unknown]
  - Intentional product misuse [Unknown]
  - Off label use [Unknown]
